FAERS Safety Report 9845754 (Version 1)
Quarter: 2014Q1

REPORT INFORMATION
  Report Type: Spontaneous
  Country: US (occurrence: US)
  Receive Date: 20140127
  Receipt Date: 20140127
  Transmission Date: 20141002
  Serious: No
  Sender: FDA-Public Use
  Company Number: US-PFIZER INC-2014023520

PATIENT
  Age: 56 Year
  Sex: Male
  Weight: 111 kg

DRUGS (4)
  1. GABAPENTIN [Suspect]
     Dosage: 300 MG, UNK
  2. GABAPENTIN [Suspect]
     Dosage: 600 MG, UNK
  3. GABAPENTIN [Suspect]
     Dosage: 800 MG, UNK
  4. METFORMIN [Concomitant]
     Indication: DIABETES MELLITUS
     Dosage: 1000 MG, 1X/DAY

REACTIONS (1)
  - Drug ineffective [Unknown]
